FAERS Safety Report 7097962-3 (Version None)
Quarter: 2010Q4

REPORT INFORMATION
  Report Type: 
  Country: None (occurrence: None)
  Receive Date: 20101103
  Receipt Date: 20101013
  Transmission Date: 20110411
  Serious: Yes (Other)
  Sender: FDA-Public Use
  Company Number: JP-SOLVAY-00310005687

PATIENT
  Age: 40 Year
  Sex: Male

DRUGS (2)
  1. LUVOX [Suspect]
     Indication: DEPRESSION
     Dosage: 75 MILLIGRAM(S), ORAL; 50 MILLIGRAM(S), ORAL
     Route: 048
  2. ALPRAZOLAM [Concomitant]

REACTIONS (9)
  - AGITATION [None]
  - ALCOHOL USE [None]
  - ARACHNOID CYST [None]
  - CONDITION AGGRAVATED [None]
  - DEPRESSED LEVEL OF CONSCIOUSNESS [None]
  - HAND FRACTURE [None]
  - IMPULSIVE BEHAVIOUR [None]
  - INTENTIONAL OVERDOSE [None]
  - ROAD TRAFFIC ACCIDENT [None]
